FAERS Safety Report 21811088 (Version 1)
Quarter: 2023Q1

REPORT INFORMATION
  Report Type: Spontaneous
  Country: US (occurrence: US)
  Receive Date: 20230103
  Receipt Date: 20230103
  Transmission Date: 20230418
  Serious: Yes (Other)
  Sender: FDA-Public Use
  Company Number: US-OTSUKA-2022_056360

PATIENT
  Sex: Female

DRUGS (2)
  1. BUSULFAN [Suspect]
     Active Substance: BUSULFAN
     Indication: Bone marrow conditioning regimen
     Dosage: 4 MG/KG
     Route: 065
  2. BUSULFAN [Suspect]
     Active Substance: BUSULFAN
     Indication: Transfusion

REACTIONS (5)
  - Autoimmune haemolytic anaemia [Unknown]
  - Cholangitis [Recovered/Resolved]
  - Cytopenia [Unknown]
  - Gastroenteritis rotavirus [Unknown]
  - Cytomegalovirus infection [Recovered/Resolved]
